FAERS Safety Report 7205795-X (Version None)
Quarter: 2010Q4

REPORT INFORMATION
  Report Type: 
  Country: None (occurrence: None)
  Receive Date: 20101231
  Receipt Date: 20101227
  Transmission Date: 20110411
  Serious: Yes (Hospitalization, Other)
  Sender: FDA-Public Use
  Company Number: US-PFIZER INC-2010180090

PATIENT
  Sex: Male
  Weight: 90.264 kg

DRUGS (8)
  1. LIPITOR [Suspect]
     Indication: BLOOD CHOLESTEROL INCREASED
     Dosage: 40 MG, 1X/DAY
  2. NIASPAN [Suspect]
     Indication: LIPIDS ABNORMAL
     Dosage: UNK
  3. VITAMIN E [Concomitant]
     Dosage: UNK
  4. TERAZOSIN HYDROCHLORIDE [Concomitant]
     Indication: BENIGN PROSTATIC HYPERPLASIA
     Dosage: UNK
  5. ACETYLSALICYLIC ACID [Concomitant]
     Dosage: UNK
  6. MULTI-VITAMINS [Concomitant]
     Dosage: UNK
  7. CALCIUM [Concomitant]
     Dosage: UNK
  8. MAGNESIUM [Concomitant]
     Dosage: UNK

REACTIONS (5)
  - BLOOD CHOLESTEROL ABNORMAL [None]
  - COUGH [None]
  - HOT FLUSH [None]
  - MYOCARDIAL INFARCTION [None]
  - NAUSEA [None]
